FAERS Safety Report 7727627-3 (Version None)
Quarter: 2011Q3

REPORT INFORMATION
  Report Type: 
  Country: None (occurrence: None)
  Receive Date: 20110902
  Receipt Date: 20110831
  Transmission Date: 20111222
  Serious: Yes (Death)
  Sender: FDA-Public Use
  Company Number: PHHY2011FR77448

PATIENT

DRUGS (2)
  1. EVEROLIMUS [Suspect]
     Indication: RENAL CANCER METASTATIC
     Dosage: UNK UKN, UNK
     Route: 065
  2. EVEROLIMUS [Suspect]
     Dosage: UNK UKN, UNK
     Route: 065
     Dates: start: 20110806

REACTIONS (4)
  - NEOPLASM PROGRESSION [None]
  - DEPRESSED LEVEL OF CONSCIOUSNESS [None]
  - NEOPLASM MALIGNANT [None]
  - GENERAL PHYSICAL HEALTH DETERIORATION [None]
